FAERS Safety Report 6140069-X (Version None)
Quarter: 2009Q1

REPORT INFORMATION
  Report Type: 
  Country: None (occurrence: None)
  Receive Date: 20090324
  Receipt Date: 20090316
  Transmission Date: 20090719
  Serious: Yes (Other)
  Sender: FDA-Public Use
  Company Number: 224505

PATIENT
  Age: 65 Year
  Sex: Female
  Weight: 69.9 kg

DRUGS (5)
  1. PACLITAXEL [Suspect]
     Indication: BREAST CANCER
     Dosage: 294 MG, PER CYCLE, INTRAVENOUS
     Route: 042
     Dates: start: 20090202
  2. ASPIRIN [Concomitant]
  3. (BISOPROLOL) [Concomitant]
  4. ROSUVASTATIN CALCIUM [Concomitant]
  5. NITROGLYCERIN [Concomitant]

REACTIONS (7)
  - BACK PAIN [None]
  - CHEST PAIN [None]
  - INFUSION RELATED REACTION [None]
  - NAUSEA [None]
  - NECK PAIN [None]
  - PALLOR [None]
  - VOMITING [None]
